FAERS Safety Report 9014629 (Version 2)
Quarter: 2013Q4

REPORT INFORMATION
  Report Type: Spontaneous
  Country: US (occurrence: US)
  Receive Date: 20130115
  Receipt Date: 20131220
  Transmission Date: 20140711
  Serious: Yes (Death)
  Sender: FDA-Public Use
  Company Number: US-B.I. PHARMACEUTICALS,INC./RIDGEFIELD-2013-BI-00471BP

PATIENT
  Age: 93 Year
  Sex: Female
  Weight: 54.43 kg

DRUGS (10)
  1. PRADAXA [Suspect]
     Indication: ANTICOAGULANT THERAPY
     Dosage: 300 MG
     Dates: start: 20110203, end: 20110209
  2. ASPIRIN [Concomitant]
     Dosage: 81 MG
  3. CALTRATE [Concomitant]
  4. LISINOPRIL [Concomitant]
     Dosage: 10 MG
  5. DILTIAZEM [Concomitant]
     Dosage: 180 MG
  6. SIMVASTATIN [Concomitant]
     Dosage: 20 MG
  7. OXYBUTYNIN [Concomitant]
     Dosage: 5 MG
  8. ARICEPT [Concomitant]
     Dosage: 5 MG
  9. FUROSEMIDE [Concomitant]
  10. METOPROLOL [Concomitant]
     Dosage: 50 MG

REACTIONS (5)
  - Gastrointestinal haemorrhage [Fatal]
  - Cardiac arrest [Fatal]
  - Myocardial infarction [Fatal]
  - Anaemia [Fatal]
  - Coagulopathy [Fatal]
